FAERS Safety Report 4473166-5 (Version None)
Quarter: 2004Q4

REPORT INFORMATION
  Report Type: 
  Country: None (occurrence: None)
  Receive Date: 20041013
  Receipt Date: 20041005
  Transmission Date: 20050328
  Serious: Yes (Hospitalization)
  Sender: FDA-Public Use
  Company Number: PHEH2004US10722

PATIENT
  Age: 78 Year
  Sex: Male

DRUGS (3)
  1. TEGRETOL [Suspect]
     Indication: CONVULSION
     Dosage: 1500 MG, QD
     Route: 048
  2. TEGRETOL [Suspect]
     Dosage: 1200 MG, QD
     Route: 048
     Dates: start: 20030601
  3. TEGRETOL [Suspect]
     Dosage: 1000 MG, QD
     Route: 048
     Dates: start: 20040101

REACTIONS (5)
  - ABASIA [None]
  - CONFUSIONAL STATE [None]
  - DEMENTIA ALZHEIMER'S TYPE [None]
  - DRUG LEVEL INCREASED [None]
  - MENTAL STATUS CHANGES [None]
